FAERS Safety Report 7544130 (Version 2)
Quarter: 2013Q3

REPORT INFORMATION
  Report Type: Report from Study
  Country: DE (occurrence: DE)
  Receive Date: 20100817
  Receipt Date: 20130708
  Transmission Date: 20140515
  Serious: Yes (Life-Threatening, Hospitalization, Other)
  Sender: FDA-Public Use
  Company Number: DE-ROCHE-720279

PATIENT
  Age: 48 Year
  Sex: Male
  Weight: 78 kg

DRUGS (3)
  1. PEG-INTERFERON ALFA 2A [Suspect]
     Indication: CHRONIC HEPATITIS C
     Route: 058
  2. DOXICYCLIN [Suspect]
     Indication: PNEUMONIA
     Route: 065
  3. RIBAVIRIN [Suspect]
     Indication: CHRONIC HEPATITIS C
     Route: 048

REACTIONS (2)
  - Empyema [Recovered/Resolved]
  - Decreased immune responsiveness [Unknown]
